FAERS Safety Report 22072162 (Version 3)
Quarter: 2024Q4

REPORT INFORMATION
  Report Type: Spontaneous
  Country: US (occurrence: US)
  Receive Date: 20230308
  Receipt Date: 20241001
  Transmission Date: 20250114
  Serious: No
  Sender: LEO PHARM
  Company Number: US-LEO Pharma-349819

PATIENT
  Age: 19 Year
  Sex: Female

DRUGS (2)
  1. ADBRY [Suspect]
     Active Substance: TRALOKINUMAB-LDRM
     Indication: Dermatitis atopic
     Dosage: DOSAGE: 2 SYRINGES (300 MG) UNDER THE SKIN EVERY TWO WEEKS
     Dates: start: 20230112, end: 20230407
  2. ADBRY [Suspect]
     Active Substance: TRALOKINUMAB-LDRM
     Indication: Dermatitis atopic

REACTIONS (1)
  - Dermatitis atopic [Unknown]
